FAERS Safety Report 4757915-4 (Version None)
Quarter: 2005Q3

REPORT INFORMATION
  Report Type: 
  Country: None (occurrence: None)
  Receive Date: 20050830
  Receipt Date: 20050817
  Transmission Date: 20060218
  Serious: Yes (Hospitalization, Other)
  Sender: FDA-Public Use
  Company Number: 2005117143

PATIENT
  Sex: Male
  Weight: 78.4723 kg

DRUGS (6)
  1. XALATAN [Suspect]
     Indication: EYE DISORDER
     Dosage: 1.5 MCG (1.5 MCG, 1 IN 1 D), OPHTHALMIC
     Route: 047
     Dates: start: 19890101
  2. SENNA (SENNA) [Concomitant]
  3. STOOL SOFTENER (DOCUSATE SODIUM) [Concomitant]
  4. ALUMINUM HYDROXIDE AND MAGNESIUM TRISILICATE [Concomitant]
  5. FIBERCON (POLYCARBOPHIL CALCIUM) [Concomitant]
  6. TYLENOL PM (DIPHENHYDRAMINE, PARACETAMOL) [Concomitant]

REACTIONS (11)
  - BLOOD POTASSIUM DECREASED [None]
  - CARDIAC DISORDER [None]
  - CORNEAL DISORDER [None]
  - DISORIENTATION [None]
  - FALL [None]
  - FLUID RETENTION [None]
  - GASTROOESOPHAGEAL REFLUX DISEASE [None]
  - GLARE [None]
  - INTRAOCULAR PRESSURE DECREASED [None]
  - LOWER LIMB FRACTURE [None]
  - VISION BLURRED [None]
